FAERS Safety Report 16931986 (Version 2)
Quarter: 2019Q4

REPORT INFORMATION
  Report Type: Report from Study
  Country: US (occurrence: HU)
  Receive Date: 20191017
  Receipt Date: 20191029
  Transmission Date: 20200122
  Serious: Yes (Other)
  Sender: FDA-Public Use
  Company Number: US-SUNOVION-2019SUN004448

PATIENT

DRUGS (2)
  1. RIVOTRIL [Concomitant]
     Active Substance: CLONAZEPAM
     Indication: PRODUCT USED FOR UNKNOWN INDICATION
     Dosage: HALF TABLET (FOR THE NIGHT)
     Route: 065
  2. INDACATEROL AND GLYCOPYRROLATE [Suspect]
     Active Substance: GLYCOPYRROLATE\INDACATEROL MALEATE
     Indication: CHRONIC OBSTRUCTIVE PULMONARY DISEASE
     Dosage: UNK
     Route: 065
     Dates: start: 2019

REACTIONS (8)
  - Diabetes mellitus [Unknown]
  - Breast cancer [Unknown]
  - Dyspnoea [Unknown]
  - Dry mouth [Unknown]
  - General physical health deterioration [Unknown]
  - Skin cancer [Unknown]
  - Thrombosis [Unknown]
  - Hot flush [Unknown]
